FAERS Safety Report 8011272-9 (Version None)
Quarter: 2011Q4

REPORT INFORMATION
  Report Type: 
  Country: None (occurrence: None)
  Receive Date: 20111227
  Receipt Date: 20111227
  Transmission Date: 20120403
  Serious: Yes (Other)
  Sender: FDA-Public Use
  Company Number: None

PATIENT
  Age: 76 Year
  Sex: Male
  Weight: 96.9 kg

DRUGS (1)
  1. ENOXAPARIN SODIUM [Suspect]
     Indication: DEEP VEIN THROMBOSIS
     Dosage: 100MG
     Route: 058
     Dates: start: 20111220, end: 20111223

REACTIONS (3)
  - INJECTION SITE PAIN [None]
  - NEEDLE ISSUE [None]
  - PRODUCT SUBSTITUTION ISSUE [None]
